FAERS Safety Report 10401709 (Version 1)
Quarter: 2014Q3

REPORT INFORMATION
  Report Type: Spontaneous
  Country: DE (occurrence: DE)
  Receive Date: 20140822
  Receipt Date: 20140822
  Transmission Date: 20150326
  Serious: Yes (Other)
  Sender: FDA-Public Use
  Company Number: DE-JNJFOC-20140811232

PATIENT
  Age: 21 Year
  Sex: Female

DRUGS (4)
  1. ORFIRIL [Suspect]
     Active Substance: VALPROIC ACID
     Indication: JUVENILE MYOCLONIC EPILEPSY
     Route: 048
     Dates: start: 20120922, end: 20130607
  2. TOPAMAX [Suspect]
     Active Substance: TOPIRAMATE
     Indication: JUVENILE MYOCLONIC EPILEPSY
     Route: 048
  3. FRISIUM [Suspect]
     Active Substance: CLOBAZAM
     Indication: JUVENILE MYOCLONIC EPILEPSY
     Route: 048
  4. KEPPRA [Suspect]
     Active Substance: LEVETIRACETAM
     Indication: JUVENILE MYOCLONIC EPILEPSY
     Route: 048

REACTIONS (3)
  - Exposure during pregnancy [Recovered/Resolved]
  - Convulsion [Unknown]
  - Pre-eclampsia [Recovered/Resolved]
